FAERS Safety Report 9649274 (Version 1)
Quarter: 2013Q4

REPORT INFORMATION
  Report Type: Spontaneous
  Country: GB (occurrence: GB)
  Receive Date: 20131028
  Receipt Date: 20131028
  Transmission Date: 20140711
  Serious: Yes (Other)
  Sender: FDA-Public Use
  Company Number: GB-GLAXOSMITHKLINE-B0931957A

PATIENT
  Sex: Female

DRUGS (1)
  1. FLIXOTIDE [Suspect]
     Indication: ASTHMA
     Route: 065

REACTIONS (1)
  - Pneumonia [Unknown]
